FAERS Safety Report 25889039 (Version 1)
Quarter: 2025Q4

REPORT INFORMATION
  Report Type: Spontaneous
  Country: US (occurrence: US)
  Receive Date: 20251007
  Receipt Date: 20251007
  Transmission Date: 20260118
  Serious: No
  Sender: BAUSCH AND LOMB
  Company Number: US-BAUSCH-BH-2025-018115

PATIENT
  Sex: Female

DRUGS (1)
  1. APLENZIN [Suspect]
     Active Substance: BUPROPION HYDROBROMIDE
     Indication: Major depression
     Route: 065

REACTIONS (5)
  - Affective disorder [Unknown]
  - Anxiety [Unknown]
  - Irritability [Unknown]
  - Condition aggravated [Unknown]
  - Drug ineffective [Unknown]
